FAERS Safety Report 17273188 (Version 1)
Quarter: 2020Q1

REPORT INFORMATION
  Report Type: Report from Study
  Country: None (occurrence: US)
  Receive Date: 20200115
  Receipt Date: 20200115
  Transmission Date: 20200409
  Serious: Yes (Hospitalization)
  Sender: FDA-Public Use
  Company Number: US-ABBVIE-19K-163-3187375-00

PATIENT
  Age: 35 Year
  Sex: Female

DRUGS (2)
  1. HUMIRA [Suspect]
     Active Substance: ADALIMUMAB
     Indication: COLITIS ULCERATIVE
     Route: 058
     Dates: start: 20191025
  2. HUMIRA [Suspect]
     Active Substance: ADALIMUMAB
     Indication: PSORIASIS

REACTIONS (16)
  - Decreased appetite [Recovering/Resolving]
  - Panic attack [Recovering/Resolving]
  - Depression [Recovering/Resolving]
  - Back pain [Unknown]
  - Headache [Unknown]
  - Abnormal faeces [Recovering/Resolving]
  - Sinusitis [Recovered/Resolved]
  - Diarrhoea [Recovering/Resolving]
  - Injection site bruising [Not Recovered/Not Resolved]
  - Localised infection [Unknown]
  - Arthralgia [Recovering/Resolving]
  - Fatigue [Unknown]
  - Ear infection [Unknown]
  - Amenorrhoea [Unknown]
  - Anxiety [Recovering/Resolving]
  - Nausea [Recovered/Resolved]

NARRATIVE: CASE EVENT DATE: 2019
